FAERS Safety Report 4274679-1 (Version None)
Quarter: 2004Q1

REPORT INFORMATION
  Report Type: 
  Country: None (occurrence: None)
  Receive Date: 20040115
  Receipt Date: 20031224
  Transmission Date: 20041129
  Serious: Yes (Hospitalization)
  Sender: FDA-Public Use
  Company Number: JP_031002049

PATIENT
  Age: 29 Year
  Sex: Female
  Weight: 39 kg

DRUGS (13)
  1. ZYPREXA [Suspect]
     Indication: BORDERLINE PERSONALITY DISORDER
     Dosage: 10 MG/DAY
     Dates: start: 20030107
  2. ZYPREXA [Suspect]
     Indication: EATING DISORDER
     Dosage: 10 MG/DAY
     Dates: start: 20030107
  3. MM [Concomitant]
  4. GASCON (DIMETICONE) [Concomitant]
  5. GLUCONSAN K (POTASSIUM GLUCONATE) [Concomitant]
  6. MUCOSTA (REBAMIPIDE) [Concomitant]
  7. MAGNESIUM OXIDE [Concomitant]
  8. LEXOTAN (BROMAZEPAM) [Concomitant]
  9. DORAL [Concomitant]
  10. CHINESE MEDICINE [Concomitant]
  11. GASMOTIN (MOSAPRIDE CITRATE) [Concomitant]
  12. ISOSORBIDE DINITRATE [Concomitant]
  13. PAXIL [Concomitant]

REACTIONS (3)
  - CHOLELITHIASIS [None]
  - CONDITION AGGRAVATED [None]
  - MENINGITIS ASEPTIC [None]
